FAERS Safety Report 8219431-7 (Version None)
Quarter: 2012Q1

REPORT INFORMATION
  Report Type: 
  Country: None (occurrence: None)
  Receive Date: 20120319
  Receipt Date: 20120313
  Transmission Date: 20120608
  Serious: Yes (Death, Congenital Anomaly)
  Sender: FDA-Public Use
  Company Number: FR-PFIZER INC-2012066004

PATIENT
  Sex: Female

DRUGS (6)
  1. CLINDAMYCIN HCL [Suspect]
     Dosage: 300 MG, 3X/DAY
     Route: 064
     Dates: start: 20100301
  2. AUGMENTIN '125' [Suspect]
     Dosage: 3 G, 1X/DAY
     Route: 064
     Dates: start: 20100301
  3. ACETAMINOPHEN [Suspect]
     Dosage: UNK
     Route: 064
     Dates: start: 20100301
  4. OXACILLIN [Suspect]
     Dosage: 1 G, 3X/DAY
     Route: 064
     Dates: start: 20100301
  5. KETOPROFEN [Suspect]
     Dosage: 150 MG, 2X/DAY
     Route: 064
     Dates: start: 20100301
  6. ACETAMINOPHEN [Suspect]
     Dosage: UNK
     Route: 064
     Dates: start: 20100301

REACTIONS (6)
  - CONGENITAL GENITAL MALFORMATION FEMALE [None]
  - ABORTION INDUCED [None]
  - MATERNAL EXPOSURE TIMING UNSPECIFIED [None]
  - PULMONARY HYPOPLASIA [None]
  - RENAL APLASIA [None]
  - ADRENAL DISORDER [None]
